FAERS Safety Report 8105955 (Version 3)
Quarter: 2015Q1

REPORT INFORMATION
  Report Type: Spontaneous
  Country: US (occurrence: US)
  Receive Date: 20110825
  Receipt Date: 20150318
  Transmission Date: 20150721
  Serious: Yes (Hospitalization)
  Sender: FDA-Public Use
  Company Number: US-BAYER-2011-076854

PATIENT
  Age: 39 Year
  Sex: Female
  Weight: 55 kg

DRUGS (7)
  1. ZEGERID [Concomitant]
     Active Substance: OMEPRAZOLE\SODIUM BICARBONATE
     Indication: DYSPEPSIA
     Dosage: UNK
     Route: 048
     Dates: start: 200904, end: 200906
  2. PEPCID [Concomitant]
     Active Substance: FAMOTIDINE
  3. FOLIC ACID W/VITAMIN B NOS [Concomitant]
  4. YAZ [Suspect]
     Active Substance: DROSPIRENONE\ETHINYL ESTRADIOL
     Indication: PREMENSTRUAL SYNDROME
  5. OMEGA 3 FATTY ACIDS [Concomitant]
     Active Substance: OMEGA-3 FATTY ACIDS
     Indication: BLOOD TRIGLYCERIDES INCREASED
     Dosage: 1 G, QD
     Route: 048
     Dates: start: 20090106, end: 20091201
  6. YAZ [Suspect]
     Active Substance: DROSPIRENONE\ETHINYL ESTRADIOL
     Indication: CONTRACEPTION
     Dosage: UNK
     Dates: start: 200612, end: 200910
  7. DEXAMETHASONE. [Concomitant]
     Active Substance: DEXAMETHASONE

REACTIONS (9)
  - Injury [None]
  - Headache [None]
  - Cerebrovascular accident [None]
  - Visual field defect [None]
  - Hemiplegia [None]
  - Pain [None]
  - Memory impairment [None]
  - Dizziness [None]
  - Speech disorder [None]

NARRATIVE: CASE EVENT DATE: 20091011
